FAERS Safety Report 7957725-0 (Version None)
Quarter: 2011Q4

REPORT INFORMATION
  Report Type: 
  Country: None (occurrence: None)
  Receive Date: 20111205
  Receipt Date: 20111123
  Transmission Date: 20120403
  Serious: Yes (Hospitalization)
  Sender: FDA-Public Use
  Company Number: US-JNJFOC-20100404265

PATIENT
  Sex: Male
  Weight: 47.8 kg

DRUGS (26)
  1. IMODIUM [Concomitant]
  2. METHOTREXATE [Suspect]
     Indication: CROHN'S DISEASE
  3. IRON [Concomitant]
  4. VANCOMYCIN [Concomitant]
  5. FLUCONAZOLE [Concomitant]
  6. FOLIC ACID [Concomitant]
  7. PEPTAMEN [Concomitant]
  8. ZANTAC [Concomitant]
  9. CHLORHEXIDINE GLUCONATE [Concomitant]
  10. OMEPRAZOLE [Concomitant]
  11. BENADRYL [Concomitant]
  12. RIFAXIMIN [Concomitant]
  13. CYTARABINE [Concomitant]
  14. INFLIXIMAB [Suspect]
     Indication: CROHN'S DISEASE
     Dosage: PRIOR TO REGISTRY
     Route: 042
     Dates: start: 20051103, end: 20090429
  15. CHOLECALCIFEROL [Concomitant]
  16. MORPHINE [Concomitant]
  17. COTRIM [Concomitant]
  18. MIRALAX [Concomitant]
  19. ZOSYN [Concomitant]
  20. NALBUPHINE [Concomitant]
  21. HUMIRA [Suspect]
     Indication: CROHN'S DISEASE
     Dates: start: 20090512, end: 20100324
  22. PREDNISONE TAB [Suspect]
     Indication: CROHN'S DISEASE
  23. CALCIUM CARBONATE [Concomitant]
  24. SCOPOLAMINE [Concomitant]
  25. ZOFRAN [Concomitant]
  26. ATIVAN [Concomitant]

REACTIONS (4)
  - TRANSFUSION REACTION [None]
  - ACUTE MONOCYTIC LEUKAEMIA [None]
  - SEPTIC SHOCK [None]
  - MULTI-ORGAN FAILURE [None]
